FAERS Safety Report 15591999 (Version 2)
Quarter: 2018Q4

REPORT INFORMATION
  Report Type: Spontaneous
  Country: AU (occurrence: AU)
  Receive Date: 20181107
  Receipt Date: 20181108
  Transmission Date: 20190205
  Serious: Yes (Hospitalization, Other)
  Sender: FDA-Public Use
  Company Number: AU-MYLANLABS-2018M1083908

PATIENT
  Age: 16 Year
  Sex: Male

DRUGS (5)
  1. CLOZAPINE. [Suspect]
     Active Substance: CLOZAPINE
     Indication: PRODUCT USED FOR UNKNOWN INDICATION
     Dosage: UNK
     Route: 048
     Dates: start: 201101
  2. ZUCLOPENTHIXOL [Suspect]
     Active Substance: ZUCLOPENTHIXOL
     Indication: PRODUCT USED FOR UNKNOWN INDICATION
     Dosage: 400 MG, PM
     Route: 030
     Dates: start: 2018
  3. OLANZAPINE. [Suspect]
     Active Substance: OLANZAPINE
     Dosage: 10 MG, AM
     Route: 048
     Dates: start: 2018
  4. OLANZAPINE. [Suspect]
     Active Substance: OLANZAPINE
     Dosage: 20 MG, PM
     Route: 048
     Dates: start: 2018
  5. OLANZAPINE. [Suspect]
     Active Substance: OLANZAPINE
     Indication: PRODUCT USED FOR UNKNOWN INDICATION
     Dosage: UNK

REACTIONS (9)
  - Psychotic disorder [Not Recovered/Not Resolved]
  - Hospitalisation [Unknown]
  - Hypothermia [Unknown]
  - Influenza like illness [Unknown]
  - Product use issue [Unknown]
  - Myocarditis [Unknown]
  - Leukocytosis [Unknown]
  - General physical condition abnormal [Unknown]
  - Metabolic syndrome [Unknown]

NARRATIVE: CASE EVENT DATE: 2011
